FAERS Safety Report 9197408 (Version 1)
Quarter: 2013Q1

REPORT INFORMATION
  Report Type: Spontaneous
  Country: US (occurrence: None)
  Receive Date: 20120709
  Receipt Date: 20120709
  Transmission Date: 20140127
  Serious: No
  Sender: FDA-Public Use
  Company Number: 2012HGS-003532

PATIENT
  Age: 54 Year
  Sex: Female

DRUGS (13)
  1. BENLYSTA [Suspect]
     Indication: SYSTEMIC LUPUS ERYTHEMATOSUS
     Dosage: 1 IN 1 28 D, INTRAVENOUS DRIP
     Dates: start: 20120413
  2. RECLAST [Suspect]
     Dosage: 1 IN 1 Y
     Dates: start: 20120416
  3. PLAQUENIL (HYDROXYCHLOROQUINE SULFATE) HYDROXYCHLOROQUINE SULFATE) [Concomitant]
  4. PREDNISONE (PREDNISONE) [Concomitant]
  5. HYDROXYCHLOROQUINE (HYDROCHLOROQUINE) (HYDROCHLOROQUINE) [Concomitant]
  6. OMEPRAZOLE (OMEPRAZOLE) (OMEPRAZOLE) [Concomitant]
  7. POTASSIUM (POTASSIUM) (POTASSIUM) [Concomitant]
  8. SYNTHROID (LEVOTHYROXINE SODIUM) (LEVOTHYROXINE SODIUM) [Concomitant]
  9. VITAMIN E (TOCOPHEROL) (TOCOPHEROL) [Concomitant]
  10. CALCIUM (CALCIUM) (CALCIUM) [Concomitant]
  11. VITAMIN D3 (COLECALCIFEROL) (COLECALCIFEROL) [Concomitant]
  12. MULTIVITAMIN (VIGRAN) (ERGOCALCIFEROL, ASCORBIC ACID, PYRIDOXINE HYDROCHLORIDE, THIAMINE HYDROCHLORIDE, RETINOL, RIBOFLAVIN, NICOTINAMIDE, CALCIUM PANTOTHENATE) [Concomitant]
  13. RESTASIS (CICLOSPORIN) (CICLORSPORIN) [Concomitant]

REACTIONS (6)
  - Feeling abnormal [None]
  - Chills [None]
  - Peripheral coldness [None]
  - Cough [None]
  - Pyrexia [None]
  - Pain in extremity [None]
